FAERS Safety Report 4962867-8 (Version None)
Quarter: 2006Q2

REPORT INFORMATION
  Report Type: 
  Country: None (occurrence: None)
  Receive Date: 20060403
  Receipt Date: 20060403
  Transmission Date: 20061013
  Serious: Yes (Life-Threatening, Hospitalization, Disabling)
  Sender: FDA-Public Use
  Company Number: None

PATIENT
  Age: 55 Year
  Sex: Female
  Weight: 131.5431 kg

DRUGS (2)
  1. SENTANYL [Suspect]
  2. SENTANYL [Concomitant]

REACTIONS (10)
  - BLOOD GLUCOSE INCREASED [None]
  - BLOOD PRESSURE INCREASED [None]
  - CONTUSION [None]
  - FATIGUE [None]
  - LETHARGY [None]
  - OEDEMA PERIPHERAL [None]
  - POLLAKIURIA [None]
  - POLYDIPSIA [None]
  - RENAL IMPAIRMENT [None]
  - VISUAL DISTURBANCE [None]
